FAERS Safety Report 8264775-6 (Version None)
Quarter: 2012Q2

REPORT INFORMATION
  Report Type: 
  Country: None (occurrence: None)
  Receive Date: 20120403
  Receipt Date: 20120322
  Transmission Date: 20120825
  Serious: Yes (Hospitalization, Other)
  Sender: FDA-Public Use
  Company Number: 2012S1000355

PATIENT
  Sex: Female

DRUGS (1)
  1. ALIPZA (PITAVASTATIN) [Suspect]
     Indication: HYPERCHOLESTEROLAEMIA
     Dates: start: 20120101

REACTIONS (1)
  - HEPATITIS ACUTE [None]
